FAERS Safety Report 8381952-4 (Version None)
Quarter: 2012Q2

REPORT INFORMATION
  Report Type: 
  Country: None (occurrence: None)
  Receive Date: 20120524
  Receipt Date: 20120511
  Transmission Date: 20120825
  Serious: Yes (Death, Hospitalization)
  Sender: FDA-Public Use
  Company Number: US-RANBAXY-2012US-56470

PATIENT
  Age: 53 Year
  Sex: Male

DRUGS (3)
  1. CARISOPRODOL [Suspect]
     Indication: PRODUCT USED FOR UNKNOWN INDICATION
     Route: 048
  2. ACETYLCYSTEINE [Suspect]
     Indication: PRODUCT USED FOR UNKNOWN INDICATION
     Route: 042
  3. HYDROCODONE BITARTRATE AND ACETAMINOPHEN [Suspect]
     Indication: PRODUCT USED FOR UNKNOWN INDICATION
     Route: 048

REACTIONS (7)
  - ANAPHYLACTOID REACTION [None]
  - ACCIDENTAL OVERDOSE [None]
  - MENTAL DISORDER [None]
  - MYOCARDIAL INFARCTION [None]
  - MEDICATION ERROR [None]
  - INTENTIONAL OVERDOSE [None]
  - SUICIDE ATTEMPT [None]
